FAERS Safety Report 19494794 (Version 2)
Quarter: 2021Q4

REPORT INFORMATION
  Report Type: Report from Study
  Country: US (occurrence: US)
  Receive Date: 20210705
  Receipt Date: 20211220
  Transmission Date: 20220303
  Serious: No
  Sender: FDA-Public Use
  Company Number: US-TAKEDA-2021TUS041432

PATIENT
  Age: 64 Year
  Sex: Male

DRUGS (1)
  1. VORTIOXETINE [Suspect]
     Active Substance: VORTIOXETINE
     Indication: Product used for unknown indication
     Dosage: 10 MILLIGRAM, QD
     Route: 048
     Dates: end: 20210621

REACTIONS (3)
  - Weight decreased [Unknown]
  - Therapy interrupted [Unknown]
  - Insomnia [Unknown]

NARRATIVE: CASE EVENT DATE: 20210621
